FAERS Safety Report 20043092 (Version 3)
Quarter: 2021Q4

REPORT INFORMATION
  Report Type: Spontaneous
  Country: GR (occurrence: GR)
  Receive Date: 20211108
  Receipt Date: 20211206
  Transmission Date: 20220303
  Serious: Yes (Other)
  Sender: FDA-Public Use
  Company Number: GR-ASTELLAS-2021US042200

PATIENT
  Age: 52 Year
  Sex: Male

DRUGS (5)
  1. MIRABEGRON [Suspect]
     Active Substance: MIRABEGRON
     Indication: Nocturia
     Dosage: 1 DF, ONCE DAILY EVERY NOON
     Route: 065
     Dates: start: 20210512, end: 20210612
  2. TAMSULOSIN HYDROCHLORIDE [Suspect]
     Active Substance: TAMSULOSIN HYDROCHLORIDE
     Indication: Product used for unknown indication
     Dosage: 1 DF (TABLET), ONCE DAILY
     Route: 048
  3. CIPROFLOXACIN [Concomitant]
     Active Substance: CIPROFLOXACIN
     Indication: Superinfection
     Dosage: UNK UNK, UNKNOWN FREQ.
     Route: 065
     Dates: start: 20210325
  4. MEROPENEM [Concomitant]
     Active Substance: MEROPENEM
     Indication: Superinfection
     Dosage: UNK UNK, UNKNOWN FREQ.
     Route: 065
  5. COLISTIN [Concomitant]
     Active Substance: COLISTIN
     Indication: Superinfection
     Dosage: UNK UNK, UNKNOWN FREQ.
     Route: 065

REACTIONS (1)
  - Malignant haemangiopericytoma [Unknown]
